FAERS Safety Report 8889081 (Version 1)
Quarter: 2012Q4

REPORT INFORMATION
  Report Type: 
  Country: IL (occurrence: IL)
  Receive Date: 20121106
  Receipt Date: 20121106
  Transmission Date: 20130627
  Serious: Yes (Other)
  Sender: FDA-Public Use
  Company Number: IL-ROCHE-1152436

PATIENT
  Age: 50 Year
  Sex: Male

DRUGS (5)
  1. RITUXIMAB [Suspect]
     Indication: CHRONIC LYMPHOCYTIC LEUKAEMIA
     Dosage: 375 mg/m2 on first cycle and 500 mg/m2, cycles 2-6
     Route: 065
  2. FLUDARABINE [Suspect]
     Indication: CHRONIC LYMPHOCYTIC LEUKAEMIA
     Route: 065
  3. CYCLOPHOSPHAMIDE [Suspect]
     Indication: CHRONIC LYMPHOCYTIC LEUKAEMIA
     Dosage: for 3 days/cycle
     Route: 065
  4. CYTARABINE [Concomitant]
     Route: 065
  5. IDARUBICIN [Concomitant]
     Route: 065

REACTIONS (3)
  - Acute myeloid leukaemia [Unknown]
  - Tumour lysis syndrome [Unknown]
  - Renal failure acute [Unknown]
